FAERS Safety Report 9409572 (Version 2)
Quarter: 2013Q2

REPORT INFORMATION
  Report Type: Spontaneous
  Country: US (occurrence: US)
  Receive Date: 20130424
  Receipt Date: 20130424
  Transmission Date: 20140414
  Serious: Yes (Other)
  Sender: FDA-Public Use
  Company Number: JPI-P-031154

PATIENT
  Age: 66 Year
  Sex: Female

DRUGS (2)
  1. XYREM [Suspect]
     Indication: SLEEP DISORDER
     Dosage: 6 GM (3 GM, 2 IN 1 D), ORAL.
     Route: 048
     Dates: start: 20040809
  2. DULOXETINE HYDROCHLORIDE [Concomitant]

REACTIONS (8)
  - Cough [None]
  - Emphysema [None]
  - Rib fracture [None]
  - Chest pain [None]
  - Depression [None]
  - Ligament sprain [None]
  - Insomnia [None]
  - Drug effect decreased [None]
